FAERS Safety Report 10378684 (Version 5)
Quarter: 2015Q2

REPORT INFORMATION
  Report Type: Spontaneous
  Country: US (occurrence: US)
  Receive Date: 20140812
  Receipt Date: 20150601
  Transmission Date: 20150821
  Serious: Yes (Hospitalization)
  Sender: FDA-Public Use
  Company Number: US-BAYER-2014-118607

PATIENT
  Age: 32 Year
  Sex: Female

DRUGS (1)
  1. MIRENA [Suspect]
     Active Substance: LEVONORGESTREL
     Indication: CONTRACEPTION
     Dosage: 20 MCG/24HR, CONT
     Route: 015
     Dates: start: 20040715, end: 20050817

REACTIONS (8)
  - Painful defaecation [None]
  - Gastrointestinal injury [None]
  - Pelvic pain [None]
  - Injury [None]
  - Uterine perforation [None]
  - Device dislocation [None]
  - Ovarian cyst [None]
  - Menstruation irregular [None]

NARRATIVE: CASE EVENT DATE: 200408
